FAERS Safety Report 8544294-X (Version None)
Quarter: 2012Q3

REPORT INFORMATION
  Report Type: 
  Country: None (occurrence: None)
  Receive Date: 20120727
  Receipt Date: 20120713
  Transmission Date: 20120928
  Serious: Yes (Other)
  Sender: FDA-Public Use
  Company Number: CA-PURDUE-GBR-2012-0010997

PATIENT
  Age: 57 Year
  Sex: Female
  Weight: 93.5 kg

DRUGS (13)
  1. DICLOFENAC SODIUM [Concomitant]
     Route: 048
  2. DEXAMETHASONE [Concomitant]
     Dosage: 4 MG, UNK
  3. ALBUTEROL SULATE [Concomitant]
     Dosage: 2.5 MG, UNK
     Route: 055
  4. PROPOFOL [Concomitant]
     Indication: SEDATION
  5. MORPHINE SULFATE [Suspect]
     Indication: SPINAL ANAESTHESIA
     Dosage: 150 MCG, UNK
     Route: 037
  6. ACETAMINOPHEN [Concomitant]
     Dosage: 1625 MG, UNK
     Route: 048
  7. RANITIDINE [Concomitant]
     Dosage: 150 MG, UNK
     Route: 048
  8. FENTANYL [Concomitant]
     Indication: SPINAL ANAESTHESIA
     Dosage: 15 MCG, UNK
     Route: 042
  9. ROSUVASTATIN [Concomitant]
     Route: 048
  10. DEXAMETHASONE [Concomitant]
     Dosage: 4 MG, UNK
     Route: 042
  11. FLUTICASONE PROPIONATE/SALMETEROL [Concomitant]
     Route: 055
  12. MIDAZOLAM [Concomitant]
     Dosage: 1.5 MG, UNK
     Route: 042
  13. BUPIVACAINE HCL [Concomitant]
     Indication: SPINAL ANAESTHESIA
     Dosage: 11 MG, UNK
     Route: 042

REACTIONS (1)
  - HYPOTHERMIA [None]
